FAERS Safety Report 5470314-5 (Version None)
Quarter: 2007Q3

REPORT INFORMATION
  Report Type: 
  Country: None (occurrence: None)
  Receive Date: 20070924
  Receipt Date: 20070911
  Transmission Date: 20080115
  Serious: Yes (Other)
  Sender: FDA-Public Use
  Company Number: 2007BI011074

PATIENT
  Age: 43 Year
  Sex: Male

DRUGS (4)
  1. TYSABRI [Suspect]
     Indication: MULTIPLE SCLEROSIS
     Dosage: 300 MG; QM; IV
     Route: 042
     Dates: start: 20061026, end: 20070301
  2. SPIRULINA [Concomitant]
  3. VITAMIN CAP [Concomitant]
  4. PREDNISONE [Concomitant]

REACTIONS (9)
  - AUTOIMMUNE HEPATITIS [None]
  - FALL [None]
  - HEPATIC FIBROSIS [None]
  - HEPATITIS [None]
  - NEPHROLITHIASIS [None]
  - OBSTRUCTION [None]
  - PROTEIN TOTAL INCREASED [None]
  - SCAN ABDOMEN ABNORMAL [None]
  - SERUM FERRITIN INCREASED [None]
